FAERS Safety Report 6127153-1 (Version None)
Quarter: 2009Q1

REPORT INFORMATION
  Report Type: 
  Country: None (occurrence: None)
  Receive Date: 20090318
  Receipt Date: 20090305
  Transmission Date: 20090719
  Serious: Yes (Hospitalization)
  Sender: FDA-Public Use
  Company Number: 1000005156

PATIENT
  Age: 48 Year
  Sex: Female

DRUGS (1)
  1. LEXAPRO [Suspect]
     Indication: ANXIETY
     Dosage: 10 MG (10 MG, 1 IN 1 D), ORAL
     Route: 048
     Dates: start: 20090304, end: 20090304

REACTIONS (3)
  - CONVULSION [None]
  - LOSS OF CONSCIOUSNESS [None]
  - VOMITING [None]
